FAERS Safety Report 20552183 (Version 3)
Quarter: 2022Q3

REPORT INFORMATION
  Report Type: Spontaneous
  Country: JP (occurrence: JP)
  Receive Date: 20220304
  Receipt Date: 20220714
  Transmission Date: 20221027
  Serious: No
  Sender: FDA-Public Use
  Company Number: JP-GSKNCCC-Case-01433903_AE-55382

PATIENT

DRUGS (1)
  1. SOTROVIMAB [Suspect]
     Active Substance: SOTROVIMAB
     Indication: COVID-19
     Dosage: 500 MG/50 ML/30 MIN
     Route: 041
     Dates: start: 20220226, end: 20220226

REACTIONS (7)
  - Feeling hot [Unknown]
  - Palmar erythema [Unknown]
  - Plantar erythema [Unknown]
  - Hyperhidrosis [Unknown]
  - Erythema [Unknown]
  - Arthralgia [Unknown]
  - Pruritus [Unknown]

NARRATIVE: CASE EVENT DATE: 20220226
